FAERS Safety Report 16965229 (Version 1)
Quarter: 2019Q4

REPORT INFORMATION
  Report Type: Spontaneous
  Country: FR (occurrence: FR)
  Receive Date: 20191028
  Receipt Date: 20191028
  Transmission Date: 20200122
  Serious: Yes (Hospitalization)
  Sender: FDA-Public Use
  Company Number: FR-SA-2019SA295859

PATIENT
  Age: 70 Year
  Sex: Female
  Weight: 49 kg

DRUGS (8)
  1. LAROSCORBINE [Concomitant]
     Active Substance: ASCORBIC ACID
     Route: 048
  2. VITAMIN B6 [Concomitant]
     Active Substance: PYRIDOXINE HYDROCHLORIDE
     Route: 048
  3. CLOBEX [CLOBETASOL PROPIONATE] [Concomitant]
  4. TACROLIMUS MONOHYDRATE [Suspect]
     Active Substance: TACROLIMUS
     Indication: DERMATITIS ATOPIC
     Dosage: 2 DF, QD
     Route: 003
     Dates: start: 20190913
  5. VASELINE [PARAFFIN] [Concomitant]
     Active Substance: PARAFFIN
     Route: 003
  6. DUPILUMAB [Suspect]
     Active Substance: DUPILUMAB
     Indication: DERMATITIS ATOPIC
     Dosage: 300 MG, QM
     Route: 058
     Dates: start: 201904, end: 201908
  7. VASELINE [PARAFFIN SOFT] [Concomitant]
     Route: 003
  8. NICORETTE [NICOTINE] [Concomitant]
     Route: 062

REACTIONS (3)
  - Palmoplantar keratoderma [Recovered/Resolved]
  - Erythema [Recovered/Resolved]
  - Product use issue [Unknown]

NARRATIVE: CASE EVENT DATE: 2019
